FAERS Safety Report 10143694 (Version 1)
Quarter: 2014Q2

REPORT INFORMATION
  Report Type: Spontaneous
  Country: US (occurrence: US)
  Receive Date: 20140430
  Receipt Date: 20140430
  Transmission Date: 20141212
  Serious: No
  Sender: FDA-Public Use
  Company Number: US-PFIZER INC-2014116487

PATIENT
  Age: 67 Year
  Sex: Male
  Weight: 83.9 kg

DRUGS (11)
  1. VIAGRA [Suspect]
     Indication: ERECTILE DYSFUNCTION
     Dosage: UNK
     Dates: start: 201403, end: 20140423
  2. POTASSIUM [Concomitant]
     Dosage: UNK
  3. ROPINIROLE [Concomitant]
     Dosage: UNK
  4. LEVODOPA-CARBIDOPA [Concomitant]
     Dosage: UNK
  5. METOPROLOL [Concomitant]
     Dosage: UNK
  6. DIGOXIN [Concomitant]
     Dosage: UNK
  7. TAMSULOSIN [Concomitant]
     Dosage: UNK
  8. FUROSEMIDE [Concomitant]
     Dosage: UNK
  9. ATORVASTATIN [Concomitant]
     Dosage: UNK
  10. DIOVANE [Concomitant]
     Dosage: UNK
  11. WARFARIN [Concomitant]
     Dosage: UNK

REACTIONS (2)
  - Impaired driving ability [Unknown]
  - Drug ineffective [Unknown]
